FAERS Safety Report 19153507 (Version 3)
Quarter: 2021Q3

REPORT INFORMATION
  Report Type: Spontaneous
  Country: US (occurrence: US)
  Receive Date: 20210419
  Receipt Date: 20210720
  Transmission Date: 20211014
  Serious: Yes (Hospitalization)
  Sender: FDA-Public Use
  Company Number: US-TAKEDA-2021TUS023794

PATIENT
  Sex: Male

DRUGS (3)
  1. EMPLICITI [Concomitant]
     Active Substance: ELOTUZUMAB
     Dosage: UNK
     Route: 065
  2. NINLARO [Suspect]
     Active Substance: IXAZOMIB CITRATE
     Indication: PLASMA CELL MYELOMA
     Dosage: 2.3 MILLIGRAM
     Route: 048
     Dates: start: 20210314
  3. POMALYST [Suspect]
     Active Substance: POMALIDOMIDE
     Indication: PLASMA CELL MYELOMA
     Dosage: UNK
     Route: 065

REACTIONS (6)
  - Presyncope [Unknown]
  - Heart rate abnormal [Unknown]
  - Cardiac pacemaker insertion [Unknown]
  - Dry mouth [Unknown]
  - Hunger [Unknown]
  - Off label use [Unknown]
